FAERS Safety Report 23967599 (Version 1)
Quarter: 2024Q2

REPORT INFORMATION
  Report Type: Spontaneous
  Country: FR (occurrence: FR)
  Receive Date: 20240612
  Receipt Date: 20240612
  Transmission Date: 20240716
  Serious: Yes (Hospitalization)
  Sender: FDA-Public Use
  Company Number: None

PATIENT
  Age: 69 Year
  Sex: Female
  Weight: 46 kg

DRUGS (1)
  1. KEYTRUDA [Suspect]
     Active Substance: PEMBROLIZUMAB
     Indication: Breast cancer
     Dosage: 1 DOSAGE FORM, Q3W
     Route: 042
     Dates: start: 20240116, end: 20240409

REACTIONS (1)
  - Hyperlipasaemia [Recovering/Resolving]

NARRATIVE: CASE EVENT DATE: 20240510
